FAERS Safety Report 24817690 (Version 1)
Quarter: 2025Q1

REPORT INFORMATION
  Report Type: Spontaneous
  Country: US (occurrence: US)
  Receive Date: 20250108
  Receipt Date: 20250108
  Transmission Date: 20250408
  Serious: Yes (Hospitalization, Other)
  Sender: ABBVIE
  Company Number: US-ABBVIE-6071111

PATIENT
  Age: 7 Year
  Sex: Male

DRUGS (9)
  1. ADALIMUMAB [Suspect]
     Active Substance: ADALIMUMAB
     Indication: Combined immunodeficiency
     Route: 058
  2. ADALIMUMAB [Suspect]
     Active Substance: ADALIMUMAB
     Indication: Inflammatory bowel disease
  3. JAKAFI [Suspect]
     Active Substance: RUXOLITINIB
     Indication: Inflammatory bowel disease
     Route: 048
  4. INFLECTRA [Suspect]
     Active Substance: INFLIXIMAB-DYYB
     Indication: Combined immunodeficiency
     Route: 065
  5. METHOTREXATE [Suspect]
     Active Substance: METHOTREXATE
     Indication: Inflammatory bowel disease
     Route: 065
  6. USTEKINUMAB [Suspect]
     Active Substance: USTEKINUMAB
     Indication: Combined immunodeficiency
     Route: 065
  7. TOFACITINIB [Suspect]
     Active Substance: TOFACITINIB
     Indication: Inflammatory bowel disease
     Route: 065
  8. GOLIMUMAB [Suspect]
     Active Substance: GOLIMUMAB
     Indication: Combined immunodeficiency
     Route: 065
  9. ANAKINRA [Suspect]
     Active Substance: ANAKINRA
     Indication: Inflammatory bowel disease
     Route: 065

REACTIONS (13)
  - Inflammatory bowel disease [Unknown]
  - Inflammation [Unknown]
  - C-reactive protein increased [Unknown]
  - Red blood cell sedimentation rate increased [Unknown]
  - Interleukin level increased [Unknown]
  - Hypoalbuminaemia [Unknown]
  - Anaemia [Unknown]
  - Thrombocytosis [Unknown]
  - Growth disorder [Unknown]
  - Frequent bowel movements [Unknown]
  - Quality of life decreased [Unknown]
  - Drug ineffective for unapproved indication [Unknown]
  - Off label use [Unknown]
